FAERS Safety Report 19873731 (Version 1)
Quarter: 2021Q3

REPORT INFORMATION
  Report Type: Spontaneous
  Country: CN (occurrence: CN)
  Receive Date: 20210923
  Receipt Date: 20210923
  Transmission Date: 20211014
  Serious: Yes (Other)
  Sender: FDA-Public Use
  Company Number: CN-BAXTER-2021BAX026217

PATIENT
  Age: 57 Year
  Sex: Female
  Weight: 61 kg

DRUGS (10)
  1. 0.9% SODIUM CHLORIDE INJECTION [Suspect]
     Active Substance: SODIUM CHLORIDE
     Dosage: 1?2 CYCLES, CYCLOPHOSPHAMIDE FOR INJECTION ADDED TO 0.9% SODIUM CHLORIDE INJECTION IVGTT
     Route: 041
  2. 0.9% SODIUM CHLORIDE INJECTION [Suspect]
     Active Substance: SODIUM CHLORIDE
     Dosage: TROPISETRON 4MG + NS100ML
     Route: 041
     Dates: start: 20200505, end: 20200505
  3. AIDASHENG [Suspect]
     Active Substance: EPIRUBICIN HYDROCHLORIDE
     Indication: BREAST CANCER IN SITU
     Dosage: 1?2 CYCLES; EPIRUBICIN HYDROCHLORIDE FOR INJECTION + 0.9% SODIUM CHLORIDE INJECTION
     Route: 041
  4. 0.9% SODIUM CHLORIDE INJECTION [Suspect]
     Active Substance: SODIUM CHLORIDE
     Indication: MEDICATION DILUTION
     Dosage: THIRD CYCLE; CYCLOPHOSPHAMIDE FOR INJECTION 1G ADDED TO 0.9% SODIUM CHLORIDE INJECTION 100 ML IVGTT
     Route: 041
     Dates: start: 20200505, end: 20200505
  5. TROPISETRON [Concomitant]
     Active Substance: TROPISETRON
     Indication: GASTROINTESTINAL DISORDER PROPHYLAXIS
     Dosage: TROPISETRON 4MG + NORMAL SALINE 100ML
     Route: 041
     Dates: start: 20200505, end: 20200505
  6. ENDOXAN [Suspect]
     Active Substance: CYCLOPHOSPHAMIDE
     Dosage: CYCLOPHOSPHAMIDE FOR INJECTION 1G ADDED TO 0.9% SODIUM CHLORIDE INJECTION 100 ML IVGTT, THIRD CYCLE
     Route: 041
     Dates: start: 20200505, end: 20200505
  7. 0.9% SODIUM CHLORIDE INJECTION [Suspect]
     Active Substance: SODIUM CHLORIDE
     Dosage: THIRD CYCLE; EPIRUBICIN HYDROCHLORIDE FOR INJECTION 150 MG + 0.9% SODIUM CHLORIDE INJECTION 150 ML
     Route: 041
     Dates: start: 20200505, end: 20200505
  8. ENDOXAN [Suspect]
     Active Substance: CYCLOPHOSPHAMIDE
     Indication: BREAST CANCER IN SITU
     Dosage: 1?2 CYCLES; CYCLOPHOSPHAMIDE FOR INJECTION + 0.9% SODIUM CHLORIDE INJECTION
     Route: 041
  9. 0.9% SODIUM CHLORIDE INJECTION [Suspect]
     Active Substance: SODIUM CHLORIDE
     Dosage: 1?2 CYCLES; EPIRUBICIN HYDROCHLORIDE FOR INJECTION ADDED TO 0.9% SODIUM CHLORIDE INJECTION
     Route: 041
  10. AIDASHENG [Suspect]
     Active Substance: EPIRUBICIN HYDROCHLORIDE
     Dosage: THIRD CYCLE, EPIRUBICIN HYDROCHLORIDE FOR INJECTION 150 MG + 0.9% SODIUM CHLORIDE INJECTION 150ML
     Route: 041
     Dates: start: 20200505, end: 20200505

REACTIONS (3)
  - Vomiting [Recovering/Resolving]
  - Nausea [Not Recovered/Not Resolved]
  - Feeding disorder [Unknown]

NARRATIVE: CASE EVENT DATE: 20200506
